FAERS Safety Report 15494593 (Version 1)
Quarter: 2018Q4

REPORT INFORMATION
  Report Type: Spontaneous
  Country: AE (occurrence: AE)
  Receive Date: 20181012
  Receipt Date: 20181012
  Transmission Date: 20190205
  Serious: Yes (Death)
  Sender: FDA-Public Use
  Company Number: PHHY2018AE121284

PATIENT

DRUGS (4)
  1. CYTARABINE. [Suspect]
     Active Substance: CYTARABINE
     Indication: ACUTE LEUKAEMIA
     Dosage: 2 G/M2, UNK(OVER 2 H, DAYS 1-5)
     Route: 065
  2. MITOXANTRONE [Suspect]
     Active Substance: MITOXANTRONE HYDROCHLORIDE
     Indication: ACUTE LEUKAEMIA
     Dosage: 10 MG/M2, UNK(1 H AT DAYS 1, 3, AND 5)
     Route: 065
  3. FILGRASTIM [Suspect]
     Active Substance: FILGRASTIM
     Indication: ACUTE LEUKAEMIA
     Dosage: 300 UG, QD (FROM DAY 6 )
     Route: 058
  4. FLUDARABINE [Suspect]
     Active Substance: FLUDARABINE PHOSPHATE
     Indication: ACUTE LEUKAEMIA
     Dosage: 30 MG/M2, UNK (OVER 30 MIN, DAYS 1-5)
     Route: 065

REACTIONS (2)
  - Acute leukaemia [Fatal]
  - Recurrent cancer [Fatal]
